FAERS Safety Report 19153524 (Version 1)
Quarter: 2021Q2

REPORT INFORMATION
  Report Type: Spontaneous
  Country: US (occurrence: US)
  Receive Date: 20210419
  Receipt Date: 20210419
  Transmission Date: 20210717
  Serious: No
  Sender: FDA-Public Use
  Company Number: US-KVK-TECH, INC-20201100014

PATIENT
  Sex: Female

DRUGS (1)
  1. PHENTERMINE HYDROCHLORIDE TABLETS, USP [Suspect]
     Active Substance: PHENTERMINE HYDROCHLORIDE
     Indication: OBESITY
     Dosage: SHE TAKES ONE TABLET PER DAY FOR 15 DAYS
     Route: 048
     Dates: start: 202008

REACTIONS (1)
  - Nausea [Not Recovered/Not Resolved]

NARRATIVE: CASE EVENT DATE: 2020
